FAERS Safety Report 7429089-2 (Version None)
Quarter: 2011Q2

REPORT INFORMATION
  Report Type: 
  Country: None (occurrence: None)
  Receive Date: 20110421
  Receipt Date: 20110413
  Transmission Date: 20111010
  Serious: Yes (Other)
  Sender: FDA-Public Use
  Company Number: CN-ASTRAZENECA-2011SE21209

PATIENT
  Age: 53 Year
  Sex: Female
  Weight: 70 kg

DRUGS (4)
  1. ARIMIDEX [Suspect]
     Indication: BREAST CANCER
     Route: 048
     Dates: start: 20110201
  2. FELODIPINE [Concomitant]
     Indication: HYPERTENSION
     Dates: start: 20110410
  3. TELMISARTAN [Concomitant]
     Indication: HYPERTENSION
     Dates: start: 20110410
  4. CLONIDINE [Concomitant]
     Indication: HYPERTENSION
     Dates: end: 20110410

REACTIONS (2)
  - DIZZINESS [None]
  - BLOOD PRESSURE INCREASED [None]
